FAERS Safety Report 11969358 (Version 2)
Quarter: 2016Q1

REPORT INFORMATION
  Report Type: Spontaneous
  Country: US (occurrence: US)
  Receive Date: 20160128
  Receipt Date: 20160314
  Transmission Date: 20160526
  Serious: Yes (Hospitalization, Other)
  Sender: FDA-Public Use
  Company Number: US-BEH-2016057996

PATIENT
  Sex: Female
  Weight: 63 kg

DRUGS (14)
  1. EPIPEN [Concomitant]
     Active Substance: EPINEPHRINE
  2. NEXIUM [Concomitant]
     Active Substance: ESOMEPRAZOLE MAGNESIUM
  3. ACETAMINOPHEN. [Concomitant]
     Active Substance: ACETAMINOPHEN
  4. VITAMIN C [Concomitant]
     Active Substance: ASCORBIC ACID
  5. LIDOCAINE/ PRILOCAINE [Concomitant]
  6. CALTRATE WITH VITAMIN D [Concomitant]
     Active Substance: CALCIUM CARBONATE\CHOLECALCIFEROL
  7. HIZENTRA [Suspect]
     Active Substance: HUMAN IMMUNOGLOBULIN G
     Indication: IMMUNODEFICIENCY COMMON VARIABLE
     Route: 058
  8. DAILY MULTIVITAMIN [Concomitant]
     Active Substance: VITAMINS
  9. HIZENTRA [Suspect]
     Active Substance: HUMAN IMMUNOGLOBULIN G
     Indication: HUMORAL IMMUNE DEFECT
     Route: 058
     Dates: start: 20150304
  10. TRAMADOL. [Concomitant]
     Active Substance: TRAMADOL
  11. DIFLUCAN [Concomitant]
     Active Substance: FLUCONAZOLE
  12. MOTRIN [Concomitant]
     Active Substance: IBUPROFEN
  13. DIPHENHYDRAMINE. [Concomitant]
     Active Substance: DIPHENHYDRAMINE
  14. CLARITIN [Concomitant]
     Active Substance: LORATADINE

REACTIONS (1)
  - Spinal fusion surgery [Unknown]
